FAERS Safety Report 4433962-7 (Version None)
Quarter: 2004Q3

REPORT INFORMATION
  Report Type: 
  Country: None (occurrence: None)
  Receive Date: 20040825
  Receipt Date: 20040805
  Transmission Date: 20050211
  Serious: Yes (Hospitalization, Other)
  Sender: FDA-Public Use
  Company Number: USA040259551

PATIENT
  Age: 84 Year
  Sex: Female
  Weight: 64 kg

DRUGS (6)
  1. EVISTA [Suspect]
     Indication: OSTEOPOROSIS
     Dates: start: 20010101, end: 20031201
  2. FORTEO [Suspect]
     Dosage: 20 UG/1 DAY
     Dates: start: 20031212
  3. PREDNISONE [Concomitant]
  4. PRILOSEC [Concomitant]
  5. CALCIUM [Concomitant]
  6. BEXTRA [Concomitant]

REACTIONS (13)
  - BACK PAIN [None]
  - BONE DENSITY DECREASED [None]
  - FALL [None]
  - HEAD INJURY [None]
  - HEADACHE [None]
  - INJECTION SITE DISCOLOURATION [None]
  - INJECTION SITE ERYTHEMA [None]
  - INJECTION SITE HAEMORRHAGE [None]
  - PELVIC FRACTURE [None]
  - PHARMACEUTICAL PRODUCT COMPLAINT [None]
  - PNEUMONIA [None]
  - SKIN ODOUR ABNORMAL [None]
  - STRESS FRACTURE [None]
